FAERS Safety Report 9802406 (Version 1)
Quarter: 2014Q1

REPORT INFORMATION
  Report Type: Spontaneous
  Country: JP (occurrence: JP)
  Receive Date: 20140107
  Receipt Date: 20140107
  Transmission Date: 20141002
  Serious: Yes (Death, Hospitalization, Other)
  Sender: FDA-Public Use
  Company Number: JP-SPECTRUM PHARMACEUTICALS, INC.-13-F-JP-00334

PATIENT
  Age: 70 Year
  Sex: Male

DRUGS (7)
  1. FLUOROURACIL [Suspect]
     Indication: COLON CANCER METASTATIC
     Dosage: 400 MG/M2, SINGLE
     Route: 042
  2. FLUOROURACIL [Suspect]
     Dosage: 2400 MG/M2, CONTINUOUS INFUSION FOR 46HRS
     Route: 042
  3. OXALIPLATIN [Suspect]
     Indication: COLON CANCER METASTATIC
     Dosage: 85 MG/M2, SINGLE
     Route: 042
  4. LEVOFOLINATE [Suspect]
     Indication: COLON CANCER METASTATIC
     Dosage: 200 MG/M2, SINGLE
     Route: 042
  5. IRINOTECAN [Suspect]
     Indication: COLON CANCER METASTATIC
     Dosage: 150 MG/M2, SINGLE
     Route: 042
  6. BEVACIZUMAB [Suspect]
     Indication: COLON CANCER METASTATIC
     Dosage: 330 MG/M2, SINGLE
     Route: 042
  7. TS 1 [Suspect]
     Indication: COLON CANCER METASTATIC
     Dosage: 100 MG, QD
     Route: 048

REACTIONS (9)
  - Disease progression [Fatal]
  - Drug ineffective [Not Recovered/Not Resolved]
  - Pulmonary oedema [Recovered/Resolved]
  - Shock [Recovered/Resolved]
  - Chills [Recovered/Resolved]
  - Cough [Recovered/Resolved]
  - Dyspnoea [Recovered/Resolved]
  - Blood pressure systolic decreased [Recovered/Resolved]
  - Oxygen saturation decreased [Recovered/Resolved]
